FAERS Safety Report 9349575 (Version 1)
Quarter: 2013Q2

REPORT INFORMATION
  Report Type: Spontaneous
  Country: RO (occurrence: RO)
  Receive Date: 20130614
  Receipt Date: 20130614
  Transmission Date: 20140414
  Serious: Yes (Hospitalization)
  Sender: FDA-Public Use
  Company Number: RO-VIIV HEALTHCARE LIMITED-B0899785A

PATIENT
  Age: 23 Year
  Sex: Female

DRUGS (5)
  1. LAMIVUDINE-HIV [Suspect]
     Indication: HIV INFECTION
     Route: 065
  2. ABACAVIR [Suspect]
     Indication: HIV INFECTION
     Route: 065
  3. RITONAVIR [Suspect]
     Indication: HIV INFECTION
     Route: 065
     Dates: start: 2001
  4. INDINAVIR [Suspect]
     Route: 065
  5. LOPINAVIR [Suspect]
     Route: 065

REACTIONS (11)
  - Polyneuropathy [Unknown]
  - Paralysis flaccid [Unknown]
  - Hyperaesthesia [Unknown]
  - Pain [Unknown]
  - Motor dysfunction [Unknown]
  - Paraparesis [Unknown]
  - Intervertebral disc protrusion [Unknown]
  - Paraplegia [Unknown]
  - Guillain-Barre syndrome [Unknown]
  - Dermatitis allergic [Unknown]
  - Treatment noncompliance [Unknown]
